FAERS Safety Report 8246655-5 (Version None)
Quarter: 2012Q1

REPORT INFORMATION
  Report Type: 
  Country: None (occurrence: None)
  Receive Date: 20120330
  Receipt Date: 20120327
  Transmission Date: 20120608
  Serious: Yes (Death)
  Sender: FDA-Public Use
  Company Number: JP-BAYER-2011-101864

PATIENT
  Age: 68 Year
  Sex: Male
  Weight: 56 kg

DRUGS (8)
  1. NEXAVAR [Suspect]
     Dosage: DAILY DOSE 400 MG
     Route: 048
     Dates: start: 20110816, end: 20111010
  2. CEFAZOLIN SODIUM [Concomitant]
     Dosage: DAILY DOSE 3 G
     Route: 048
     Dates: start: 20110119
  3. NEXAVAR [Suspect]
  4. NIVADIL [Concomitant]
     Dosage: DAILY DOSE 4 MG
     Route: 048
  5. NEXAVAR [Suspect]
     Indication: HEPATIC NEOPLASM MALIGNANT
     Dosage: DAILY DOSE 800 MG
     Route: 048
     Dates: start: 20101027, end: 20110118
  6. NEXAVAR [Suspect]
     Dosage: DAILY DOSE 800 MG
     Route: 048
     Dates: start: 20110322, end: 20110815
  7. LISINOPRIL [Concomitant]
     Dosage: DAILY DOSE 10 MG
     Route: 048
  8. NEXAVAR [Suspect]
     Dosage: DAILY DOSE 400 MG
     Route: 048
     Dates: start: 20110119, end: 20110321

REACTIONS (3)
  - HEPATIC NEOPLASM MALIGNANT [None]
  - HEPATIC FUNCTION ABNORMAL [None]
  - JAUNDICE [None]
